FAERS Safety Report 5217212-X (Version None)
Quarter: 2007Q1

REPORT INFORMATION
  Report Type: 
  Country: None (occurrence: None)
  Receive Date: 20070124
  Receipt Date: 20070109
  Transmission Date: 20070707
  Serious: Yes (Other)
  Sender: FDA-Public Use
  Company Number: ZA-BRISTOL-MYERS SQUIBB COMPANY-13627872

PATIENT
  Age: 24 Hour
  Sex: Male

DRUGS (6)
  1. EFAVIRENZ [Suspect]
     Indication: HIV INFECTION
     Route: 064
     Dates: start: 20051027
  2. STAVUDINE [Concomitant]
     Route: 064
  3. LOMOTIL [Concomitant]
     Route: 064
  4. LAMIVUDINE [Concomitant]
     Route: 064
  5. FLAGYL [Concomitant]
     Route: 064
  6. SULFAMETHOXAZOLE + TRIMETHOPRIM [Concomitant]
     Route: 064

REACTIONS (2)
  - PREGNANCY [None]
  - SMALL FOR DATES BABY [None]
